FAERS Safety Report 22648939 (Version 2)
Quarter: 2023Q4

REPORT INFORMATION
  Report Type: Spontaneous
  Country: US (occurrence: US)
  Receive Date: 20230628
  Receipt Date: 20231012
  Transmission Date: 20240110
  Serious: Yes (Other)
  Sender: FDA-Public Use
  Company Number: US-MYLANLABS-2023M1067226

PATIENT
  Age: 53 Year
  Sex: Female

DRUGS (17)
  1. PREDNISONE [Suspect]
     Active Substance: PREDNISONE
     Indication: Squamous cell carcinoma of skin
     Dosage: 80 MILLIGRAM, QD
     Route: 048
  2. PREDNISONE [Suspect]
     Active Substance: PREDNISONE
     Indication: Vogt-Koyanagi-Harada disease
  3. METHOTREXATE [Suspect]
     Active Substance: METHOTREXATE
     Indication: Uveitis
     Dosage: UNK
     Route: 065
  4. METHOTREXATE [Suspect]
     Active Substance: METHOTREXATE
     Indication: Vogt-Koyanagi-Harada disease
  5. ACETAZOLAMIDE [Suspect]
     Active Substance: ACETAZOLAMIDE
     Indication: Glaucoma
     Dosage: UNK
     Route: 065
  6. MYCOPHENOLATE MOFETIL [Suspect]
     Active Substance: MYCOPHENOLATE MOFETIL
     Indication: Uveitis
     Dosage: 500 MILLIGRAM, QD
     Route: 065
  7. MYCOPHENOLATE MOFETIL [Suspect]
     Active Substance: MYCOPHENOLATE MOFETIL
     Indication: Vogt-Koyanagi-Harada disease
  8. AZATHIOPRINE [Suspect]
     Active Substance: AZATHIOPRINE
     Indication: Squamous cell carcinoma of skin
     Dosage: UNK
     Route: 065
  9. AZATHIOPRINE [Suspect]
     Active Substance: AZATHIOPRINE
     Indication: Vogt-Koyanagi-Harada disease
  10. KENALOG [Suspect]
     Active Substance: TRIAMCINOLONE ACETONIDE
     Indication: Eye inflammation
     Dosage: 40 MILLIGRAM (SUB-TENON INJECTION IN OS)
     Route: 065
  11. HUMIRA [Suspect]
     Active Substance: ADALIMUMAB
     Indication: Uveitis
     Dosage: 40 MILLIGRAM, BIWEEKLY
     Route: 058
  12. HUMIRA [Suspect]
     Active Substance: ADALIMUMAB
     Indication: Vogt-Koyanagi-Harada disease
  13. FLUOROURACIL [Concomitant]
     Active Substance: FLUOROURACIL
     Indication: Squamous cell carcinoma of skin
     Dosage: UNK
     Route: 026
  14. LATANOPROST [Concomitant]
     Active Substance: LATANOPROST
     Indication: Glaucoma
     Dosage: UNK
     Route: 065
  15. DORZOLAMIDE\TIMOLOL [Concomitant]
     Active Substance: DORZOLAMIDE\TIMOLOL
     Indication: Glaucoma
     Dosage: UNK
     Route: 065
  16. BRIMONIDINE [Concomitant]
     Active Substance: BRIMONIDINE TARTRATE
     Indication: Glaucoma
     Dosage: UNK
     Route: 065
  17. NETARSUDIL [Concomitant]
     Active Substance: NETARSUDIL
     Indication: Glaucoma
     Dosage: UNK
     Route: 065

REACTIONS (11)
  - Ocular hypertension [Unknown]
  - Disease progression [Unknown]
  - Squamous cell carcinoma of skin [Unknown]
  - Rebound effect [Unknown]
  - Vogt-Koyanagi-Harada disease [Unknown]
  - Gastritis [Unknown]
  - Gastrointestinal disorder [Unknown]
  - Nausea [Unknown]
  - Vomiting [Unknown]
  - Paraesthesia [Unknown]
  - Off label use [Unknown]
